FAERS Safety Report 8502924-2 (Version None)
Quarter: 2012Q3

REPORT INFORMATION
  Report Type: 
  Country: None (occurrence: None)
  Receive Date: 20120711
  Receipt Date: 20120627
  Transmission Date: 20120928
  Serious: Yes (Hospitalization)
  Sender: FDA-Public Use
  Company Number: JP-UCBSA-017439

PATIENT
  Age: 57 Year
  Sex: Female
  Weight: 66 kg

DRUGS (20)
  1. INDOMETHACIN FARNESIL [Concomitant]
     Dates: start: 20080401, end: 20100809
  2. BROTIZOLAM [Concomitant]
     Dosage: TOTAL DAILY DOSE: 0.25 MG
     Dates: start: 20120125
  3. PREDNISOLONE [Concomitant]
     Dosage: DAILY DOSE: 2 MG
     Dates: start: 20101016
  4. FAMOTIDINE [Concomitant]
     Dosage: TOTAL DAILY DOSE: 40 MG
     Dates: start: 20110316
  5. CIMZIA [Suspect]
     Route: 058
     Dates: start: 20110325, end: 20110419
  6. VALPROATE SODIUM [Concomitant]
     Dosage: TOTAL DAILY DOSE: 12 ML
     Dates: start: 20100926, end: 20120608
  7. FOLIC ACID [Concomitant]
     Dates: start: 20080401, end: 20100803
  8. OLMESARTAN MEDOXOMIL [Concomitant]
     Dates: start: 20101110
  9. METHOTREXATE [Concomitant]
     Dates: start: 20090517, end: 20100808
  10. ZOLPIDEM TARTRATE [Concomitant]
     Dosage: 5 MG AS NECESSARY
     Dates: end: 20100809
  11. PREDNISOLONE [Concomitant]
     Dosage: DAILY DOSE 4 MG
     Dates: start: 20090513, end: 20100809
  12. METHOTREXATE [Concomitant]
     Dates: start: 20101228
  13. FAMOTIDINE [Concomitant]
     Dates: end: 20100809
  14. FAMOTIDINE [Concomitant]
     Dosage: TOTAL DAILY DOSE: 40 MG
     Dates: start: 20100925
  15. CIMZIA [Suspect]
     Indication: RHEUMATOID ARTHRITIS
     Dosage: C87041
     Route: 058
     Dates: start: 20090607
  16. CIMZIA [Suspect]
     Route: 058
     Dates: start: 20110420
  17. FOLIC ACID [Concomitant]
     Dates: start: 20101223
  18. CIMZIA [Suspect]
     Route: 058
     Dates: start: 20091228, end: 20100804
  19. CIMZIA [Suspect]
     Route: 058
     Dates: start: 20101027, end: 20110216
  20. TEPRENONE [Concomitant]
     Dates: end: 20100809

REACTIONS (2)
  - CONVULSION [None]
  - SUBARACHNOID HAEMORRHAGE [None]
